FAERS Safety Report 8575482-4 (Version None)
Quarter: 2012Q3

REPORT INFORMATION
  Report Type: 
  Country: None (occurrence: None)
  Receive Date: 20120807
  Receipt Date: 20120802
  Transmission Date: 20120928
  Serious: Yes (Other)
  Sender: FDA-Public Use
  Company Number: PHHY2012CA005949

PATIENT
  Sex: Female

DRUGS (1)
  1. SANDOSTATIN LAR [Suspect]
     Indication: NEUROENDOCRINE TUMOUR
     Dosage: 30 MG EVERY 4 WEEKS
     Route: 030
     Dates: start: 20120118

REACTIONS (4)
  - MARITAL PROBLEM [None]
  - EMOTIONAL DISTRESS [None]
  - BLOOD PRESSURE SYSTOLIC INCREASED [None]
  - MESENTERIC LYMPHADENOPATHY [None]
